FAERS Safety Report 8484123-6 (Version None)
Quarter: 2012Q3

REPORT INFORMATION
  Report Type: 
  Country: None (occurrence: None)
  Receive Date: 20120703
  Receipt Date: 20120621
  Transmission Date: 20120928
  Serious: Yes (Hospitalization)
  Sender: FDA-Public Use
  Company Number: JP-VERTEX PHARMACEUTICALS INC.-AE-2012-003754

PATIENT
  Age: 69 Year
  Sex: Male

DRUGS (14)
  1. TELAVIC (TELAPREVIR) [Suspect]
     Route: 048
     Dates: start: 20120207, end: 20120214
  2. REBETOL [Concomitant]
     Route: 048
     Dates: start: 20120129
  3. PEG-INTRON [Concomitant]
     Indication: HEPATITIS C
     Route: 058
     Dates: start: 20120117, end: 20120117
  4. TELAVIC (TELAPREVIR) [Suspect]
     Indication: HEPATITIS C
     Route: 048
     Dates: start: 20120117, end: 20120123
  5. TELAVIC (TELAPREVIR) [Suspect]
     Route: 048
     Dates: start: 20120124, end: 20120207
  6. REBETOL [Concomitant]
     Route: 048
     Dates: start: 20120221
  7. PEG-INTRON [Concomitant]
     Route: 058
     Dates: start: 20120410
  8. TELAVIC (TELAPREVIR) [Suspect]
     Route: 048
     Dates: start: 20120214, end: 20120410
  9. REBETOL [Concomitant]
     Indication: HEPATITIS C
     Route: 048
     Dates: start: 20120117, end: 20120122
  10. PEG-INTRON [Concomitant]
     Route: 058
     Dates: start: 20120124, end: 20120207
  11. PEG-INTRON [Concomitant]
     Route: 058
     Dates: start: 20120214
  12. REBETOL [Concomitant]
     Route: 048
     Dates: start: 20120123, end: 20120128
  13. PEG-INTRON [Concomitant]
     Route: 058
     Dates: end: 20120327
  14. AMARYL [Concomitant]
     Route: 048

REACTIONS (3)
  - RENAL DISORDER [None]
  - HYPERURICAEMIA [None]
  - DECREASED APPETITE [None]
